FAERS Safety Report 9259506 (Version 1)
Quarter: 2013Q2

REPORT INFORMATION
  Report Type: Spontaneous
  Country: US (occurrence: US)
  Receive Date: 20130428
  Receipt Date: 20130428
  Transmission Date: 20140414
  Serious: Yes (Other)
  Sender: FDA-Public Use
  Company Number: US201201007912

PATIENT
  Age: 57 Year
  Sex: Female
  Weight: 136.05 kg

DRUGS (12)
  1. BYETTA PEN DISPOSABLE [Suspect]
     Indication: DIABETES MELLITUS
     Dates: start: 20060608, end: 20080324
  2. ERGOCALCIFEROL [Concomitant]
     Dosage: 50000 UNIT 1CAPS
     Route: 048
     Dates: start: 20080326
  3. SYNTHROID [Concomitant]
     Dosage: TABS?125MCG
     Route: 048
     Dates: start: 20080125
  4. FELODIPINE [Concomitant]
     Dosage: TABS
     Route: 048
     Dates: start: 20080125
  5. GLIPIZIDE [Concomitant]
     Route: 048
  6. MAGNESIUM [Concomitant]
  7. TRICOR [Concomitant]
     Route: 048
  8. FISH OIL [Concomitant]
     Route: 048
  9. VITAMIN E [Concomitant]
     Dosage: BID
     Route: 048
  10. MULTIVITAMIN [Concomitant]
     Route: 048
  11. VITAMIN D [Concomitant]
  12. COENZYME-Q10 [Concomitant]

REACTIONS (1)
  - Renal failure chronic [Unknown]
